FAERS Safety Report 15436505 (Version 1)
Quarter: 2018Q3

REPORT INFORMATION
  Report Type: Spontaneous
  Country: JP (occurrence: JP)
  Receive Date: 20180927
  Receipt Date: 20180927
  Transmission Date: 20181010
  Serious: Yes (Other)
  Sender: FDA-Public Use
  Company Number: JP-EISAI MEDICAL RESEARCH-EC-2018-045516

PATIENT

DRUGS (1)
  1. ARICEPT [Suspect]
     Active Substance: DONEPEZIL HYDROCHLORIDE
     Indication: HALLUCINATION
     Dosage: UNKNOWN
     Route: 048

REACTIONS (4)
  - Product use in unapproved indication [Unknown]
  - Cardiac arrest [Unknown]
  - Renal impairment [Unknown]
  - Dehydration [Unknown]

NARRATIVE: CASE EVENT DATE: 2018
